FAERS Safety Report 26146603 (Version 1)
Quarter: 2025Q4

REPORT INFORMATION
  Report Type: Spontaneous
  Country: US (occurrence: None)
  Receive Date: 20251211
  Receipt Date: 20251211
  Transmission Date: 20260118
  Serious: Yes (Death, Life-Threatening, Hospitalization, Other)
  Sender: ORGANON
  Company Number: US-ORGANON-O2512USA000369

PATIENT
  Age: 15 Year
  Sex: Male
  Weight: 71.7 kg

DRUGS (10)
  1. TOCILIZUMAB [Interacting]
     Active Substance: TOCILIZUMAB
     Indication: Neuromyelitis optica spectrum disorder
     Dosage: 8 MILLION PER KILOGRAM
  2. PREDNISONE [Interacting]
     Active Substance: PREDNISONE
     Indication: Optic neuritis
     Dosage: 60 MILLIGRAM, QD
     Dates: start: 20220809
  3. PREDNISONE [Interacting]
     Active Substance: PREDNISONE
     Dosage: 5 MILLIGRAM, QW
     Dates: start: 202208
  4. METHYLPREDNISOLONE [Interacting]
     Active Substance: METHYLPREDNISOLONE
     Indication: Optic disc oedema
     Dosage: 500 MILLIGRAM, BID
     Dates: start: 20220714, end: 20220716
  5. METHYLPREDNISOLONE [Interacting]
     Active Substance: METHYLPREDNISOLONE
     Indication: Hereditary retinal dystrophy
     Dosage: HD MPD ROUND 2
     Dates: start: 20220807, end: 20220809
  6. METHYLPREDNISOLONE [Interacting]
     Active Substance: METHYLPREDNISOLONE
     Dosage: HD MPD ROUND 3
  7. METHYLPREDNISOLONE [Interacting]
     Active Substance: METHYLPREDNISOLONE
     Dosage: WHICH WAS CONVERTED TO AN EQUIPOTENT DOSE OF METHYLPREDNISOLONE
  8. RITUXIMAB [Concomitant]
     Active Substance: RITUXIMAB
     Indication: Visual impairment
     Dosage: UNK
  9. RITUXIMAB [Concomitant]
     Active Substance: RITUXIMAB
     Indication: Blindness
  10. immunoglobulin [Concomitant]
     Indication: Visual impairment
     Dosage: 2MILLIGRAM PER KILOGRAM PER DAY

REACTIONS (4)
  - Gastrointestinal perforation [Fatal]
  - Aspergillus infection [Fatal]
  - Drug interaction [Fatal]
  - Product use in unapproved indication [Unknown]

NARRATIVE: CASE EVENT DATE: 20221228
